FAERS Safety Report 16949442 (Version 1)
Quarter: 2019Q4

REPORT INFORMATION
  Report Type: Spontaneous
  Country: US (occurrence: US)
  Receive Date: 20191023
  Receipt Date: 20191023
  Transmission Date: 20200122
  Serious: No
  Sender: FDA-Public Use
  Company Number: US-GILEAD-2019-0434080

PATIENT
  Age: 23 Year
  Sex: Female

DRUGS (1)
  1. TRUVADA [Suspect]
     Active Substance: EMTRICITABINE\TENOFOVIR DISOPROXIL FUMARATE
     Indication: PROPHYLAXIS AGAINST HIV INFECTION
     Dosage: 300 MG, TID
     Route: 065

REACTIONS (5)
  - Nausea [Unknown]
  - Dizziness [Unknown]
  - Incorrect dose administered [Recovered/Resolved]
  - Headache [Unknown]
  - Off label use [Unknown]
